FAERS Safety Report 24582417 (Version 1)
Quarter: 2024Q4

REPORT INFORMATION
  Report Type: Spontaneous
  Country: EG (occurrence: EG)
  Receive Date: 20241106
  Receipt Date: 20241106
  Transmission Date: 20250115
  Serious: Yes (Life-Threatening)
  Sender: NOVO NORDISK
  Company Number: EG-NOVOPROD-1309330

PATIENT
  Age: 795 Month
  Sex: Male

DRUGS (2)
  1. INSULIN HUMAN [Suspect]
     Active Substance: INSULIN HUMAN
     Indication: Diabetes mellitus
     Dosage: 50 IU, QD (20/U MORNING AND 30 U/NIGHT)
     Route: 058
     Dates: start: 2005
  2. ERASTAPEX CO [Concomitant]
     Indication: Hypertension
     Dosage: 1 TAB/DAY
     Route: 048

REACTIONS (2)
  - Diabetic foot [Not Recovered/Not Resolved]
  - Peripheral artery stenosis [Not Recovered/Not Resolved]

NARRATIVE: CASE EVENT DATE: 20170101
